FAERS Safety Report 7772302-2 (Version None)
Quarter: 2011Q3

REPORT INFORMATION
  Report Type: 
  Country: None (occurrence: None)
  Receive Date: 20110922
  Receipt Date: 20110715
  Transmission Date: 20111222
  Serious: No
  Sender: FDA-Public Use
  Company Number: US-ASTRAZENECA-2011SE42387

PATIENT
  Age: 76 Year
  Sex: Female

DRUGS (3)
  1. SEROQUEL [Suspect]
     Route: 048
  2. ARICEPT [Concomitant]
     Indication: DEMENTIA
  3. NAMENDA [Concomitant]
     Indication: DEMENTIA

REACTIONS (2)
  - FEELING COLD [None]
  - DYSKINESIA [None]
